FAERS Safety Report 18625164 (Version 2)
Quarter: 2021Q1

REPORT INFORMATION
  Report Type: Spontaneous
  Country: US (occurrence: US)
  Receive Date: 20201217
  Receipt Date: 20210115
  Transmission Date: 20210419
  Serious: No
  Sender: FDA-Public Use
  Company Number: US-BIOVITRUM-2020US7407

PATIENT
  Sex: Female

DRUGS (3)
  1. FLOVENT [Concomitant]
     Active Substance: FLUTICASONE PROPIONATE
     Indication: ASTHMA
     Dosage: 2 PUFFS
  2. SYNAGIS [Suspect]
     Active Substance: PALIVIZUMAB
     Indication: ANTIVIRAL PROPHYLAXIS
     Dates: start: 20201009
  3. LEVALBUTEROL. [Concomitant]
     Active Substance: LEVALBUTEROL
     Dosage: PRN

REACTIONS (2)
  - Weight gain poor [Unknown]
  - Eating disorder [Unknown]
